FAERS Safety Report 13839857 (Version 1)
Quarter: 2017Q3

REPORT INFORMATION
  Report Type: Spontaneous
  Country: US (occurrence: US)
  Receive Date: 20170805
  Receipt Date: 20170805
  Transmission Date: 20171127
  Serious: No
  Sender: FDA-Public Use
  Company Number: None

PATIENT
  Age: 67 Year
  Sex: Male

DRUGS (17)
  1. OMEPRAZOLE. [Concomitant]
     Active Substance: OMEPRAZOLE
  2. POLYETHYLENE GLYCOL 3350. [Concomitant]
     Active Substance: POLYETHYLENE GLYCOL 3350
  3. NYSTATIN ORAL LIQUID [Concomitant]
     Active Substance: NYSTATIN
  4. HYOSCYAMINE. [Concomitant]
     Active Substance: HYOSCYAMINE
  5. OXYCODONE [Concomitant]
     Active Substance: OXYCODONE
  6. PACLITAXEL. [Suspect]
     Active Substance: PACLITAXEL
     Indication: PROSTATE CANCER
     Route: 042
     Dates: start: 20170116, end: 20170116
  7. SENNA [Concomitant]
     Active Substance: SENNA LEAF\SENNOSIDES\SENNOSIDES A AND B
  8. GEMCITABINE [Suspect]
     Active Substance: GEMCITABINE\GEMCITABINE HYDROCHLORIDE
     Route: 042
  9. PROCHLORPERAZINE. [Concomitant]
     Active Substance: PROCHLORPERAZINE
  10. TAMSULOSIN [Concomitant]
     Active Substance: TAMSULOSIN
  11. CLOPIDOGREL [Concomitant]
     Active Substance: CLOPIDOGREL BISULFATE
  12. PANCREALIPASE [Concomitant]
     Active Substance: PANCRELIPASE
  13. AMLODIPINE [Concomitant]
     Active Substance: AMLODIPINE BESYLATE
  14. ATORVASTATIN [Concomitant]
     Active Substance: ATORVASTATIN
  15. DOCUSATE [Concomitant]
     Active Substance: DOCUSATE
  16. FLUCONAZOLE. [Concomitant]
     Active Substance: FLUCONAZOLE
  17. FLUVOXAMINE [Concomitant]
     Active Substance: FLUVOXAMINE

REACTIONS (9)
  - Drug ineffective [None]
  - Oropharyngeal pain [None]
  - Glossodynia [None]
  - Tachycardia [None]
  - Mucosal inflammation [None]
  - Oesophagitis [None]
  - Febrile neutropenia [None]
  - Oral pain [None]
  - Dysphagia [None]

NARRATIVE: CASE EVENT DATE: 20170119
